FAERS Safety Report 7655572-0 (Version None)
Quarter: 2011Q3

REPORT INFORMATION
  Report Type: 
  Country: None (occurrence: None)
  Receive Date: 20110804
  Receipt Date: 20110728
  Transmission Date: 20111222
  Serious: Yes (Death, Hospitalization, Other)
  Sender: FDA-Public Use
  Company Number: PHHY2011JP68695

PATIENT
  Sex: Male
  Weight: 50 kg

DRUGS (13)
  1. DOXAZOSIN MESYLATE [Concomitant]
     Dosage: 4 MG, UNK
  2. CALCITRIOL [Concomitant]
     Dosage: 0.25 UG, UNK
     Route: 048
     Dates: end: 20110527
  3. DOXAZOSIN MESYLATE [Concomitant]
     Dosage: 2 MG, UNK
     Route: 048
     Dates: start: 20100707, end: 20101130
  4. REZALTAS COMBINATION [Concomitant]
     Dosage: 1 DF, UNK
     Route: 048
     Dates: start: 20101201, end: 20110526
  5. CALBLOCK [Concomitant]
     Dosage: 16 MG, UNK
     Route: 048
     Dates: end: 20101130
  6. WYTENS [Concomitant]
     Dosage: 4 MG, UNK
     Route: 048
     Dates: end: 20101130
  7. KETOBUN [Concomitant]
     Dosage: 100 MG, UNK
     Route: 048
     Dates: end: 20110527
  8. ALISKIREN [Suspect]
     Dosage: 150 MG, ONCE DAILY
     Route: 048
     Dates: start: 20100714, end: 20110526
  9. TAMSULOSIN HYDROCHLORIDE [Concomitant]
     Dosage: 0.2 MG, UNK
     Route: 048
     Dates: end: 20110527
  10. JUNCHO TO [Concomitant]
     Dosage: 5 G, UNK
     Route: 048
     Dates: end: 20110527
  11. FERROSTEC [Concomitant]
     Dosage: 100 MG, UNK
     Route: 048
     Dates: end: 20110527
  12. CANDESARTAN CILEXETIL [Concomitant]
     Dosage: 12 MG, UNK
     Route: 048
     Dates: end: 20101130
  13. CALCIUM CARBONATE [Concomitant]
     Dosage: 1500 MG, UNK
     Dates: start: 20101222, end: 20110527

REACTIONS (6)
  - HAEMOGLOBIN DECREASED [None]
  - BLOOD CREATININE INCREASED [None]
  - AORTIC VALVE STENOSIS [None]
  - ATRIAL FIBRILLATION [None]
  - HAEMATOCRIT DECREASED [None]
  - BLOOD UREA INCREASED [None]
